FAERS Safety Report 5687957-6 (Version None)
Quarter: 2008Q1

REPORT INFORMATION
  Report Type: 
  Country: None (occurrence: None)
  Receive Date: 20080328
  Receipt Date: 20061026
  Transmission Date: 20080703
  Serious: No
  Sender: FDA-Public Use
  Company Number: US-BAYER-US-2006-033345

PATIENT
  Age: 34 Year
  Sex: Female
  Weight: 42 kg

DRUGS (3)
  1. MIRENA [Suspect]
     Indication: CONTRACEPTION
     Route: 015
     Dates: start: 20051001
  2. FAMVIR /NET/ [Concomitant]
  3. SPIRONOLACTONE [Concomitant]
     Route: 048
     Dates: start: 20051001

REACTIONS (1)
  - ALOPECIA [None]
